FAERS Safety Report 7970231-2 (Version None)
Quarter: 2011Q4

REPORT INFORMATION
  Report Type: 
  Country: None (occurrence: None)
  Receive Date: 20111212
  Receipt Date: 20111206
  Transmission Date: 20120403
  Serious: Yes (Hospitalization)
  Sender: FDA-Public Use
  Company Number: TR-ABBOTT-11P-161-0881282-00

PATIENT
  Age: 39 Year
  Sex: Female

DRUGS (4)
  1. VALPROATE SODIUM [Suspect]
     Indication: SCHIZOPHRENIA
  2. RISPERIDONE [Concomitant]
     Indication: SCHIZOPHRENIA
  3. RISPERIDONE [Concomitant]
  4. BIPERIDEN HYDROCHLORIDE TAB [Concomitant]
     Indication: PSYCHOTIC DISORDER

REACTIONS (1)
  - LEUKOCYTOCLASTIC VASCULITIS [None]
